FAERS Safety Report 17492289 (Version 1)
Quarter: 2020Q1

REPORT INFORMATION
  Report Type: Spontaneous
  Country: US (occurrence: US)
  Receive Date: 20200303
  Receipt Date: 20200303
  Transmission Date: 20200409
  Serious: No
  Sender: FDA-Public Use
  Company Number: US-TEVA-2020-US-1192266

PATIENT
  Sex: Female

DRUGS (1)
  1. GLIPIZIDE ER [Suspect]
     Active Substance: GLIPIZIDE
     Route: 065

REACTIONS (3)
  - Abdominal discomfort [Unknown]
  - Product taste abnormal [Unknown]
  - Product odour abnormal [Unknown]
